FAERS Safety Report 20306648 (Version 2)
Quarter: 2022Q1

REPORT INFORMATION
  Report Type: Spontaneous
  Country: US (occurrence: US)
  Receive Date: 20220106
  Receipt Date: 20220121
  Transmission Date: 20220423
  Serious: Yes (Other)
  Sender: FDA-Public Use
  Company Number: US-TEVA-2021-US-1995651

PATIENT
  Age: 25 Year
  Sex: Female

DRUGS (1)
  1. DICYCLOMINE [Suspect]
     Active Substance: DICYCLOMINE HYDROCHLORIDE
     Indication: Drug therapy
     Route: 048

REACTIONS (2)
  - Oesophagitis [Unknown]
  - Product administration error [Unknown]
